FAERS Safety Report 4520707-5 (Version None)
Quarter: 2004Q4

REPORT INFORMATION
  Report Type: 
  Country: None (occurrence: None)
  Receive Date: 20041207
  Receipt Date: 20041006
  Transmission Date: 20050328
  Serious: Yes (Life-Threatening, Hospitalization, Disabling, Other)
  Sender: FDA-Public Use
  Company Number: US-MERCK-0410USA00698

PATIENT
  Age: 66 Year
  Sex: Female
  Weight: 95 kg

DRUGS (10)
  1. VIOXX [Suspect]
     Indication: OSTEOARTHRITIS
     Route: 048
     Dates: start: 19990101, end: 20040830
  2. CELEXA [Concomitant]
     Route: 065
  3. NORVASC [Concomitant]
     Route: 065
  4. ALLEGRA [Concomitant]
     Route: 065
  5. METFORMIN [Concomitant]
     Route: 065
  6. LOVASTATIN [Concomitant]
     Route: 065
  7. BUFFERIN [Concomitant]
     Route: 065
  8. CALCIUM (UNSPECIFIED) [Concomitant]
     Route: 065
  9. VITAMINS (UNSPECIFIED) [Concomitant]
     Route: 065
  10. GLUCOPHAGE [Concomitant]
     Route: 065

REACTIONS (19)
  - ATRIOVENTRICULAR BLOCK [None]
  - BRONCHOSPASM [None]
  - BUNDLE BRANCH BLOCK RIGHT [None]
  - CARDIAC DISORDER [None]
  - CHEST DISCOMFORT [None]
  - CHEST PAIN [None]
  - DYSPNOEA [None]
  - HYPERTENSION [None]
  - INCISION SITE COMPLICATION [None]
  - INSOMNIA [None]
  - MUSCLE CRAMP [None]
  - MUSCLE SPASMS [None]
  - MYOCARDIAL ISCHAEMIA [None]
  - PALPITATIONS [None]
  - PARAESTHESIA [None]
  - PULMONARY HYPERTENSION [None]
  - SENSATION OF HEAVINESS [None]
  - URINARY TRACT INFECTION BACTERIAL [None]
  - VENTRICULAR EXTRASYSTOLES [None]
